FAERS Safety Report 6207450-1 (Version None)
Quarter: 2009Q2

REPORT INFORMATION
  Report Type: 
  Country: None (occurrence: None)
  Receive Date: 20090527
  Receipt Date: 20090527
  Transmission Date: 20091009
  Serious: No
  Sender: FDA-Public Use
  Company Number: None

PATIENT
  Age: 30 Year
  Sex: Female
  Weight: 58.9676 kg

DRUGS (1)
  1. RISPERDAL [Suspect]
     Indication: DEPRESSION
     Dates: start: 19990101, end: 20000101

REACTIONS (3)
  - GALACTORRHOEA [None]
  - INSOMNIA [None]
  - PAIN [None]
